FAERS Safety Report 21720736 (Version 1)
Quarter: 2022Q4

REPORT INFORMATION
  Report Type: Spontaneous
  Country: US (occurrence: US)
  Receive Date: 20221213
  Receipt Date: 20221213
  Transmission Date: 20230113
  Serious: Yes (Other)
  Sender: FDA-Public Use
  Company Number: US-MLMSERVICE-20221130-3946117-1

PATIENT
  Age: 15 Year
  Sex: Female

DRUGS (2)
  1. RISPERIDONE [Interacting]
     Active Substance: RISPERIDONE
     Indication: Psychotic symptom
     Route: 048
  2. LITHIUM [Interacting]
     Active Substance: LITHIUM
     Indication: Mania
     Route: 065

REACTIONS (3)
  - Antipsychotic drug level increased [Recovered/Resolved]
  - Parkinsonism [Recovered/Resolved]
  - Drug interaction [Unknown]
